FAERS Safety Report 6173711-8 (Version None)
Quarter: 2009Q2

REPORT INFORMATION
  Report Type: 
  Country: None (occurrence: None)
  Receive Date: 20090430
  Receipt Date: 20090421
  Transmission Date: 20091009
  Serious: Yes (Hospitalization, Other)
  Sender: FDA-Public Use
  Company Number: PHEH2009US01453

PATIENT
  Sex: Male

DRUGS (3)
  1. CLOZAPINE [Suspect]
     Indication: SCHIZOPHRENIA
     Dosage: 300 MG, BID
     Route: 048
     Dates: start: 20071219
  2. ARIPIPRAZOLE [Concomitant]
     Dosage: 10 MG, QD
     Route: 048
  3. ALLOPURINOL [Concomitant]
     Dosage: 300 MG, QD
     Route: 048

REACTIONS (15)
  - ABDOMINAL DISCOMFORT [None]
  - ATAXIA [None]
  - B-CELL LYMPHOMA [None]
  - CHEMOTHERAPY [None]
  - CONSTIPATION [None]
  - DEEP VEIN THROMBOSIS [None]
  - DYSPNOEA [None]
  - FOLLICULITIS [None]
  - LYMPHADENOPATHY [None]
  - METASTASIS [None]
  - MUSCULAR WEAKNESS [None]
  - PAIN [None]
  - PANCYTOPENIA [None]
  - SPINAL CORD DISORDER [None]
  - WHITE BLOOD CELL COUNT DECREASED [None]
